FAERS Safety Report 13401473 (Version 1)
Quarter: 2017Q2

REPORT INFORMATION
  Report Type: Spontaneous
  Country: SI (occurrence: SI)
  Receive Date: 20170404
  Receipt Date: 20170404
  Transmission Date: 20170830
  Serious: Yes (Death, Hospitalization, Other)
  Sender: FDA-Public Use
  Company Number: SI-ASTELLAS-2017US012809

PATIENT
  Sex: Male

DRUGS (6)
  1. MEDROL [Concomitant]
     Active Substance: METHYLPREDNISOLONE
     Indication: GRAFT VERSUS HOST DISEASE
  2. MEDROL [Concomitant]
     Active Substance: METHYLPREDNISOLONE
     Indication: RASH
     Dosage: UNK UNK, UNKNOWN FREQ.
     Route: 065
     Dates: start: 20150317
  3. MYCAMINE [Suspect]
     Active Substance: MICAFUNGIN SODIUM
     Route: 065
     Dates: start: 20150407, end: 20150414
  4. CANDIDASE [Concomitant]
     Indication: PYREXIA
     Dosage: UNK, UNKNOWN FREQ.
     Route: 065
     Dates: start: 201501, end: 20150326
  5. MYCAMINE [Suspect]
     Active Substance: MICAFUNGIN SODIUM
     Indication: PYREXIA
     Route: 065
     Dates: start: 20150326, end: 20150407
  6. MYCAMINE [Suspect]
     Active Substance: MICAFUNGIN SODIUM
     Route: 065
     Dates: start: 20150414

REACTIONS (4)
  - Respiratory failure [Unknown]
  - Death [Fatal]
  - Inflammatory marker increased [Unknown]
  - Pyrexia [Unknown]

NARRATIVE: CASE EVENT DATE: 20150407
